FAERS Safety Report 20110444 (Version 2)
Quarter: 2022Q1

REPORT INFORMATION
  Report Type: Spontaneous
  Country: US (occurrence: US)
  Receive Date: 20211124
  Receipt Date: 20220225
  Transmission Date: 20220423
  Serious: No
  Sender: FDA-Public Use
  Company Number: US-NOVOPROD-803265

PATIENT
  Sex: Female

DRUGS (2)
  1. NOVOLOG [Suspect]
     Active Substance: INSULIN ASPART
     Indication: Type 2 diabetes mellitus
     Dosage: UNK
     Route: 065
  2. VICTOZA [Suspect]
     Active Substance: LIRAGLUTIDE
     Indication: Type 2 diabetes mellitus
     Dosage: UNK
     Route: 065

REACTIONS (9)
  - Feeling abnormal [Unknown]
  - Decreased appetite [Unknown]
  - Pain in extremity [Unknown]
  - Fatigue [Unknown]
  - Headache [Unknown]
  - Abdominal pain upper [Unknown]
  - Insomnia [Unknown]
  - Asthenia [Unknown]
  - Blood glucose increased [Unknown]
